FAERS Safety Report 22389166 (Version 2)
Quarter: 2024Q4

REPORT INFORMATION
  Report Type: Spontaneous
  Country: IT (occurrence: IT)
  Receive Date: 20230531
  Receipt Date: 20241119
  Transmission Date: 20250114
  Serious: Yes (Other)
  Sender: RANBAXY
  Company Number: IT-SUN PHARMACEUTICAL INDUSTRIES LTD-2023R1-391978

PATIENT
  Age: 14 Year
  Sex: Male

DRUGS (4)
  1. PREDNISONE [Suspect]
     Active Substance: PREDNISONE
     Indication: Nephrotic syndrome
     Dosage: UNK
     Route: 048
  2. MYCOPHENOLATE MOFETIL [Suspect]
     Active Substance: MYCOPHENOLATE MOFETIL
     Indication: Nephrotic syndrome
     Dosage: 1200 MILLIGRAM/KILOGRAM, DAILY
     Route: 065
  3. CYCLOSPORINE [Suspect]
     Active Substance: CYCLOSPORINE
     Indication: Nephrotic syndrome
     Dosage: 5 MILLIGRAM/KILOGRAM, DAILY
     Route: 065
  4. RITUXIMAB [Suspect]
     Active Substance: RITUXIMAB
     Indication: Nephrotic syndrome
     Dosage: 375 MILLIGRAM/SQ. METER
     Route: 040

REACTIONS (9)
  - Disease recurrence [Unknown]
  - Obesity [Recovered/Resolved]
  - Body mass index increased [Recovered/Resolved]
  - Anaphylactic reaction [Recovered/Resolved]
  - CD19 lymphocytes decreased [Recovered/Resolved]
  - Osteopenia [Recovered/Resolved]
  - Pneumonia [Recovered/Resolved]
  - Nephrotic syndrome [Recovered/Resolved]
  - Hypertension [Recovered/Resolved]
